FAERS Safety Report 21315353 (Version 1)
Quarter: 2022Q3

REPORT INFORMATION
  Report Type: Spontaneous
  Country: US (occurrence: None)
  Receive Date: 20220909
  Receipt Date: 20220909
  Transmission Date: 20221026
  Serious: No
  Sender: FDA-Public Use
  Company Number: US-ARIS GLOBAL-202112-2187

PATIENT
  Sex: Female

DRUGS (6)
  1. OXERVATE [Suspect]
     Active Substance: CENEGERMIN-BKBJ
     Indication: Neurotrophic keratopathy
     Route: 047
     Dates: start: 20211020
  2. BESIVANCE [Concomitant]
     Active Substance: BESIFLOXACIN
  3. VALTREX [Concomitant]
     Active Substance: VALACYCLOVIR HYDROCHLORIDE
  4. ZIRGAN [Concomitant]
     Active Substance: GANCICLOVIR
     Dosage: GEL
  5. INVELTYS [Concomitant]
     Active Substance: LOTEPREDNOL ETABONATE
  6. CYCLOPENTOLATE HYDROCHLORIDE [Concomitant]
     Active Substance: CYCLOPENTOLATE HYDROCHLORIDE

REACTIONS (2)
  - Pain [Unknown]
  - Dizziness [Unknown]
